FAERS Safety Report 11884440 (Version 1)
Quarter: 2015Q4

REPORT INFORMATION
  Report Type: Spontaneous
  Country: US (occurrence: None)
  Receive Date: 20151231
  Receipt Date: 20151231
  Transmission Date: 20160305
  Serious: Yes (Other)
  Sender: FDA-Public Use
  Company Number: None

PATIENT
  Age: 63 Year
  Sex: Female
  Weight: 81.65 kg

DRUGS (21)
  1. VITAMIN D [Concomitant]
     Active Substance: CHOLECALCIFEROL
  2. MIRALAX/BENEFIBER [Concomitant]
  3. COMBIGAN [Concomitant]
     Active Substance: BRIMONIDINE TARTRATE\TIMOLOL MALEATE
  4. PRENATAL VITAMINS [Concomitant]
     Active Substance: VITAMINS
  5. POTASSIUM CITRATE. [Concomitant]
     Active Substance: POTASSIUM CITRATE
  6. CALTRATE 600 MG AND D3 [Concomitant]
  7. CPAP MACHINE [Concomitant]
  8. ALBUTEROL SULFATE. [Concomitant]
     Active Substance: ALBUTEROL SULFATE
  9. ZADITOR [Concomitant]
     Active Substance: KETOTIFEN FUMARATE
  10. HYDROCHLOROTHIAZIDE (HYDRODIURIL) [Concomitant]
  11. LISINOPRIL. [Concomitant]
     Active Substance: LISINOPRIL
  12. EPIPEN [Concomitant]
     Active Substance: EPINEPHRINE
  13. OMEPRAZOLE. [Concomitant]
     Active Substance: OMEPRAZOLE
  14. CHOLESTYRAMINE. [Concomitant]
     Active Substance: CHOLESTYRAMINE
  15. RED YEAST RICE [Concomitant]
     Active Substance: DIETARY SUPPLEMENT
  16. FARXIGA 5MG TAB AST. GENERIC DAPAGLIFLOZIN PROPANODIOL TA [Suspect]
     Active Substance: DAPAGLIFLOZIN PROPANEDIOL
     Indication: TYPE 2 DIABETES MELLITUS
     Dosage: ONCE DAILY BY MOUTH IN AM
     Route: 048
     Dates: start: 20140917, end: 20151021
  17. COLESEVELAM HCL (WELCHOL) [Concomitant]
  18. JINTELI [Concomitant]
     Active Substance: ETHINYL ESTRADIOL\NORETHINDRONE ACETATE
  19. METFORMIN [Concomitant]
     Active Substance: METFORMIN HYDROCHLORIDE
  20. DYMISTAONE SPRAY [Concomitant]
  21. DELTROL [Concomitant]

REACTIONS (1)
  - Urinary tract infection [None]

NARRATIVE: CASE EVENT DATE: 20140910
